FAERS Safety Report 16599304 (Version 7)
Quarter: 2019Q4

REPORT INFORMATION
  Report Type: Report from Study
  Country: ZA (occurrence: ZA)
  Receive Date: 20190719
  Receipt Date: 20191121
  Transmission Date: 20200122
  Serious: Yes (Other)
  Sender: FDA-Public Use
  Company Number: PHHY2018ZA149144

PATIENT
  Age: 30 Year
  Sex: Female

DRUGS (8)
  1. RITALINA [Suspect]
     Active Substance: METHYLPHENIDATE HYDROCHLORIDE
     Indication: PRODUCT USED FOR UNKNOWN INDICATION
     Dosage: 2 DF, QD
     Route: 065
  2. PREDNISONE. [Concomitant]
     Active Substance: PREDNISONE
     Indication: PRODUCT USED FOR UNKNOWN INDICATION
     Dosage: 60 MG, QD (FOR 5 DAYS)
     Route: 065
  3. URBANOL [Concomitant]
     Active Substance: CLOBAZAM
     Indication: PRODUCT USED FOR UNKNOWN INDICATION
     Dosage: UNK
     Route: 065
  4. MINERVA [Concomitant]
     Active Substance: CYPROTERONE ACETATE\ETHINYL ESTRADIOL
     Indication: PRODUCT USED FOR UNKNOWN INDICATION
     Dosage: UNK
     Route: 065
  5. COPAXONE [Concomitant]
     Active Substance: GLATIRAMER ACETATE
     Indication: PRODUCT USED FOR UNKNOWN INDICATION
     Dosage: UNK
     Route: 065
  6. SLOW MAG [Concomitant]
     Active Substance: MAGNESIUM CHLORIDE
     Indication: PRODUCT USED FOR UNKNOWN INDICATION
     Dosage: UNK
     Route: 065
  7. TUVIGIN [Suspect]
     Active Substance: FINGOLIMOD HYDROCHLORIDE
     Indication: MULTIPLE SCLEROSIS
     Dosage: 0.5 MG, QD
     Route: 048
     Dates: start: 20181031
  8. TUVIGIN [Suspect]
     Active Substance: FINGOLIMOD HYDROCHLORIDE
     Dosage: 0.5 MG, QD
     Route: 048

REACTIONS (46)
  - Nervousness [Unknown]
  - Blood chloride increased [Unknown]
  - Fatigue [Recovering/Resolving]
  - Sinus headache [Unknown]
  - Irritability [Unknown]
  - Pyrexia [Unknown]
  - Upper-airway cough syndrome [Unknown]
  - Chest discomfort [Recovering/Resolving]
  - Neutrophil count increased [Unknown]
  - Dizziness [Not Recovered/Not Resolved]
  - Diarrhoea [Recovering/Resolving]
  - Ear infection [Unknown]
  - Asthma [Unknown]
  - Hypertension [Unknown]
  - Ill-defined disorder [Unknown]
  - Blood potassium increased [Unknown]
  - Dyspnoea [Recovering/Resolving]
  - Lymphocyte count decreased [Unknown]
  - Malaise [Unknown]
  - Drug ineffective [Unknown]
  - C-reactive protein increased [Unknown]
  - Nasopharyngitis [Unknown]
  - Nausea [Recovering/Resolving]
  - Oropharyngeal pain [Unknown]
  - Ear pain [Unknown]
  - Muscle spasms [Unknown]
  - Heart rate increased [Unknown]
  - Discomfort [Unknown]
  - Headache [Recovering/Resolving]
  - Rhinorrhoea [Unknown]
  - Productive cough [Unknown]
  - Cough [Unknown]
  - Pain [Recovering/Resolving]
  - Hypoaesthesia [Not Recovered/Not Resolved]
  - Blood pressure fluctuation [Unknown]
  - Tension headache [Recovering/Resolving]
  - Sinusitis [Not Recovered/Not Resolved]
  - Pruritus [Unknown]
  - Bronchitis [Unknown]
  - Wheezing [Not Recovered/Not Resolved]
  - Tenderness [Recovering/Resolving]
  - Heart rate irregular [Unknown]
  - Dysuria [Recovering/Resolving]
  - General physical condition abnormal [Recovering/Resolving]
  - Influenza [Unknown]
  - Migraine [Unknown]

NARRATIVE: CASE EVENT DATE: 20190126
